FAERS Safety Report 4340940-5 (Version None)
Quarter: 2004Q2

REPORT INFORMATION
  Report Type: 
  Country: None (occurrence: None)
  Receive Date: 20040419
  Receipt Date: 20040407
  Transmission Date: 20050107
  Serious: Yes (Disabling)
  Sender: FDA-Public Use
  Company Number: GB-BRISTOL-MYERS SQUIBB COMPANY-12553525

PATIENT
  Age: 73 Year
  Sex: Male
  Weight: 69 kg

DRUGS (6)
  1. CISPLATIN [Suspect]
     Indication: BLADDER CANCER
     Dosage: THERAPY DATES 04-FEB TO 03-MAR-2004; CUMULATIVE DOSE 210 MG
     Route: 042
     Dates: start: 20040303, end: 20040303
  2. PACLITAXEL [Suspect]
     Indication: BLADDER CANCER
     Dosage: THERAPY DATES 04-FEB TO 03-MAR-2004; CUMULATIVE DOSE 378 MG
     Route: 042
     Dates: start: 20040303, end: 20040303
  3. GEMCITABINE [Suspect]
     Indication: BLADDER CANCER
     Dosage: THERAPY DATES: 04-FEB TO 03-MAR-2004; CUMULATIVE DOSE 4720 MG
     Route: 042
     Dates: start: 20040303, end: 20040303
  4. METOCLOPRAMIDE [Concomitant]
     Dates: start: 20040218
  5. ASPIRIN [Concomitant]
     Dates: start: 20030101
  6. LANSOPRAZOLE [Concomitant]

REACTIONS (1)
  - BLINDNESS [None]
